FAERS Safety Report 6994251-X (Version None)
Quarter: 2010Q3

REPORT INFORMATION
  Report Type: 
  Country: None (occurrence: None)
  Receive Date: 20100917
  Receipt Date: 20070517
  Transmission Date: 20110219
  Serious: Yes (Hospitalization)
  Sender: FDA-Public Use
  Company Number: US-ASTRAZENECA-2006UW12038

PATIENT
  Age: 18030 Day
  Sex: Male
  Weight: 78 kg

DRUGS (8)
  1. SEROQUEL [Suspect]
     Indication: BIPOLAR DISORDER
     Dosage: 100-200 MG
     Route: 048
     Dates: start: 20031107
  2. SEROQUEL [Suspect]
     Route: 048
  3. DEPAKOTE ER [Concomitant]
     Dates: start: 20031107
  4. FLUOXETINE [Concomitant]
     Dosage: 20-40 MG
     Dates: start: 20031107
  5. TRAMADOL HCL [Concomitant]
     Dates: start: 20050211
  6. LORATADINE [Concomitant]
     Dates: start: 20050211
  7. CEPHALEXIN [Concomitant]
     Dates: start: 20050211
  8. NORVASC [Concomitant]
     Dosage: 5-10 MG
     Dates: start: 20050711

REACTIONS (2)
  - DIABETES MELLITUS [None]
  - TYPE 2 DIABETES MELLITUS [None]
